FAERS Safety Report 18319362 (Version 2)
Quarter: 2020Q4

REPORT INFORMATION
  Report Type: Report from Study
  Country: GB (occurrence: GB)
  Receive Date: 20200928
  Receipt Date: 20201006
  Transmission Date: 20210113
  Serious: Yes (Other)
  Sender: FDA-Public Use
  Company Number: NVSC2020GB247228

PATIENT
  Sex: Female

DRUGS (2)
  1. ERELZI (ETANERCEPT) [Suspect]
     Active Substance: ETANERCEPT
     Dosage: 25 MG, BIW (AS DIRECTED)
     Route: 065
  2. ERELZI (ETANERCEPT) [Suspect]
     Active Substance: ETANERCEPT
     Indication: RHEUMATOID ARTHRITIS
     Dosage: 50 MG, QW (PRE-FILLED SYRINGE)
     Route: 058
     Dates: start: 20200630

REACTIONS (5)
  - Headache [Unknown]
  - Product dose omission issue [Unknown]
  - Infected bite [Unknown]
  - Lower respiratory tract infection [Unknown]
  - Infection [Unknown]
